FAERS Safety Report 5317285-X (Version None)
Quarter: 2007Q2

REPORT INFORMATION
  Report Type: 
  Country: None (occurrence: None)
  Receive Date: 20070504
  Receipt Date: 20070425
  Transmission Date: 20071010
  Serious: Yes (Hospitalization, Other)
  Sender: FDA-Public Use
  Company Number: US-PFIZER INC-2007033378

PATIENT
  Sex: Female
  Weight: 90.7 kg

DRUGS (10)
  1. ZOLOFT [Suspect]
     Indication: DEPRESSION
  2. CHANTIX [Suspect]
     Indication: SMOKING CESSATION THERAPY
  3. PAXIL [Suspect]
     Indication: DEPRESSION
  4. NICOTINE [Suspect]
     Indication: SMOKING CESSATION THERAPY
     Dates: start: 20070201, end: 20070401
  5. EFFEXOR [Suspect]
     Indication: DEPRESSION
  6. SYNTHROID [Concomitant]
  7. MOMETASONE FUROATE [Concomitant]
  8. SPIRIVA [Concomitant]
  9. XANAX [Concomitant]
  10. ALL OTHER THERAPEUTIC PRODUCTS [Concomitant]

REACTIONS (7)
  - ANXIETY [None]
  - DEPRESSION [None]
  - DRUG INEFFECTIVE [None]
  - HYPERSENSITIVITY [None]
  - HYPERTENSION [None]
  - MALAISE [None]
  - PNEUMONIA [None]
